FAERS Safety Report 26120945 (Version 1)
Quarter: 2025Q4

REPORT INFORMATION
  Report Type: Spontaneous
  Country: US (occurrence: None)
  Receive Date: 20251203
  Receipt Date: 20251203
  Transmission Date: 20260119
  Serious: Yes (Hospitalization)
  Sender: FDA-CTU
  Company Number: None

PATIENT
  Age: 63 Year
  Sex: Female

DRUGS (11)
  1. COPAXONE [Suspect]
     Active Substance: GLATIRAMER ACETATE
     Indication: Multiple sclerosis
     Dosage: FREQUENCY : 3 TIMES A WEEK;?
     Route: 058
     Dates: start: 20220915
  2. famotidine 40 [Concomitant]
  3. METOPROLOL SUCCINATE [Concomitant]
     Active Substance: METOPROLOL SUCCINATE
  4. furosemide 20 [Concomitant]
  5. potassium cl 10 meq [Concomitant]
  6. ASPIRIN [Concomitant]
     Active Substance: ASPIRIN
  7. DIAZEPAM [Concomitant]
     Active Substance: DIAZEPAM
  8. LEXAPRO [Concomitant]
     Active Substance: ESCITALOPRAM OXALATE
  9. TRAMADOL [Concomitant]
     Active Substance: TRAMADOL
  10. xyzal 5 mg [Concomitant]
  11. famotidine 1 O [Concomitant]

REACTIONS (2)
  - Fall [None]
  - Ankle fracture [None]

NARRATIVE: CASE EVENT DATE: 20251125
